FAERS Safety Report 5097099-9 (Version None)
Quarter: 2006Q3

REPORT INFORMATION
  Report Type: 
  Country: None (occurrence: None)
  Receive Date: 20060901
  Receipt Date: 20060817
  Transmission Date: 20061208
  Serious: Yes (Other)
  Sender: FDA-Public Use
  Company Number: US200608003613

PATIENT
  Sex: Female

DRUGS (3)
  1. ZYPREXA [Suspect]
  2. ZYPREXA ZYDIS [Suspect]
  3. ANTIPSYCHOTICS [Concomitant]

REACTIONS (1)
  - INTUBATION [None]
